FAERS Safety Report 9798666 (Version 2)
Quarter: 2015Q3

REPORT INFORMATION
  Report Type: Spontaneous
  Country: US (occurrence: US)
  Receive Date: 20140106
  Receipt Date: 20150806
  Transmission Date: 20151125
  Serious: No
  Sender: FDA-Public Use
  Company Number: US-GILEAD-2010-0029747

PATIENT
  Age: 47 Year
  Sex: Female
  Weight: 51.26 kg

DRUGS (20)
  1. SODIUM CHLORIDE. [Concomitant]
     Active Substance: SODIUM CHLORIDE
  2. OMEPRAZOLE. [Concomitant]
     Active Substance: OMEPRAZOLE
  3. IMODIUM [Concomitant]
     Active Substance: LOPERAMIDE HYDROCHLORIDE
  4. AMITRIPTYLINE [Concomitant]
     Active Substance: AMITRIPTYLINE
  5. PCCA POLOXAMER [Concomitant]
  6. LECITHIN GRANULES [Concomitant]
  7. KETAMINE [Concomitant]
     Active Substance: KETAMINE
  8. CALCIUM 500 + D [Concomitant]
     Active Substance: CALCIUM\VITAMIN D
  9. REVATIO [Concomitant]
     Active Substance: SILDENAFIL CITRATE
  10. CLONIDINE. [Concomitant]
     Active Substance: CLONIDINE
  11. GABAPENTIN. [Concomitant]
     Active Substance: GABAPENTIN
  12. LETAIRIS [Suspect]
     Active Substance: AMBRISENTAN
     Indication: PULMONARY ARTERIAL HYPERTENSION
     Route: 048
     Dates: start: 20100305
  13. ERGOCALCIFEROL/NICOTINAMIDE/RETINOL/ASCORBIC ACID/FOLIC ACID/PANTHENOL/RIBOFLAVIN/THIAMINE HYDROCHLO [Concomitant]
  14. REMODULIN [Concomitant]
     Active Substance: TREPROSTINIL
  15. PROGRAF [Concomitant]
     Active Substance: TACROLIMUS\TACROLIMUS ANHYDROUS
  16. POTASSIUM CHLORIDE. [Concomitant]
     Active Substance: POTASSIUM CHLORIDE
  17. FUROSEMIDE. [Concomitant]
     Active Substance: FUROSEMIDE
  18. NEURONTIN [Concomitant]
     Active Substance: GABAPENTIN
  19. LIDOCAINE. [Concomitant]
     Active Substance: LIDOCAINE
  20. WARFARIN [Concomitant]
     Active Substance: WARFARIN

REACTIONS (1)
  - Menorrhagia [Unknown]
